FAERS Safety Report 7090222-6 (Version None)
Quarter: 2010Q4

REPORT INFORMATION
  Report Type: 
  Country: None (occurrence: None)
  Receive Date: 20101105
  Receipt Date: 20101105
  Transmission Date: 20110411
  Serious: Yes (Hospitalization)
  Sender: FDA-Public Use
  Company Number: None

PATIENT
  Age: 50 Year
  Sex: Male
  Weight: 103.3 kg

DRUGS (7)
  1. BEVACIZUMAB [Suspect]
     Indication: NON-SMALL CELL LUNG CANCER
     Dosage: 1110MG (15MG/KG) IV, QDAY 1
     Route: 042
     Dates: start: 20101014
  2. DOCETAXEL [Suspect]
     Indication: NON-SMALL CELL LUNG CANCER
     Dosage: 173MG (75MG/M2) IV, QDAY1
     Route: 042
     Dates: start: 20101014
  3. GEMCITABINE [Suspect]
     Indication: NON-SMALL CELL LUNG CANCER
     Dosage: 2070MG 900MG/M2IV, DAY1, 8
     Route: 042
     Dates: start: 20101014
  4. GEMCITABINE [Suspect]
     Indication: NON-SMALL CELL LUNG CANCER
     Dosage: 2070MG 900MG/M2IV, DAY1, 8
     Route: 042
     Dates: start: 20101021
  5. FOLIC ACID [Concomitant]
  6. DEXAMETHASONE [Concomitant]
  7. PROCHLORPERAZINE [Concomitant]

REACTIONS (2)
  - EMBOLISM ARTERIAL [None]
  - PULMONARY EMBOLISM [None]
